FAERS Safety Report 4709709-3 (Version None)
Quarter: 2005Q3

REPORT INFORMATION
  Report Type: 
  Country: None (occurrence: None)
  Receive Date: 20050707
  Receipt Date: 20050621
  Transmission Date: 20060218
  Serious: Yes (Death, Other)
  Sender: FDA-Public Use
  Company Number: USA0506100933

PATIENT
  Age: 36 Year
  Sex: Male

DRUGS (2)
  1. HUMULIN N [Suspect]
     Dates: end: 19970920
  2. HUMULIN R [Suspect]
     Dates: end: 19970920

REACTIONS (2)
  - BLOOD GLUCOSE FLUCTUATION [None]
  - CORONARY ARTERY DISEASE [None]
